FAERS Safety Report 20838865 (Version 2)
Quarter: 2022Q2

REPORT INFORMATION
  Report Type: Spontaneous
  Country: DE (occurrence: DE)
  Receive Date: 20220517
  Receipt Date: 20220530
  Transmission Date: 20220721
  Serious: Yes (Hospitalization, Other)
  Sender: FDA-Public Use
  Company Number: DE-AMGEN-DEUSP2022081520

PATIENT
  Age: 68 Year
  Sex: Male
  Weight: 73.5 kg

DRUGS (14)
  1. XGEVA [Suspect]
     Active Substance: DENOSUMAB
     Indication: Product used for unknown indication
     Dosage: UNK
     Route: 065
  2. ASPIRIN [Concomitant]
     Active Substance: ASPIRIN
     Dosage: 100 MILLIGRAM
     Route: 048
     Dates: start: 20120615
  3. GLIMEPIRIDE [Concomitant]
     Active Substance: GLIMEPIRIDE
     Dosage: 4 MILLIGRAM
     Route: 048
     Dates: start: 20210528
  4. METFORMIN [Concomitant]
     Active Substance: METFORMIN HYDROCHLORIDE
     Dosage: 1000 MILLIGRAM
     Route: 048
     Dates: start: 20210528
  5. TOUJEO [Concomitant]
     Active Substance: INSULIN GLARGINE
     Dosage: 10 INTERNATIONAL UNIT
     Route: 058
     Dates: start: 20210528
  6. AMLODIPINE BESYLATE [Concomitant]
     Active Substance: AMLODIPINE BESYLATE
     Dosage: 5 MILLIGRAM
     Route: 048
     Dates: start: 20120615
  7. PREDNISOLONE [Concomitant]
     Active Substance: PREDNISOLONE
     Dosage: 5 MILLIGRAM
     Route: 048
     Dates: start: 20210906
  8. DICLOFENAC [Concomitant]
     Active Substance: DICLOFENAC
     Dosage: 146 MILLIGRAM
     Route: 048
     Dates: start: 20211220, end: 20220416
  9. AMOXICILLIN [Concomitant]
     Active Substance: AMOXICILLIN
     Dosage: 1000 MILLIGRAM
     Route: 048
     Dates: start: 20220209, end: 20220403
  10. IBUPROFEN [Concomitant]
     Active Substance: IBUPROFEN
     Dosage: 600 MILLIGRAM
     Route: 048
     Dates: start: 20220119, end: 20220416
  11. RAMIPRIL [Concomitant]
     Active Substance: RAMIPRIL
     Dosage: 10 MILLIGRAM
     Route: 048
     Dates: start: 20150615
  12. NEBIVOLOL [Concomitant]
     Active Substance: NEBIVOLOL
     Dosage: 2.5 MILLIGRAM
     Route: 048
     Dates: start: 20190615
  13. SIMVASTATIN [Concomitant]
     Active Substance: SIMVASTATIN
     Dosage: 40 MILLIGRAM
     Route: 048
     Dates: start: 20150615
  14. TAMSULOSIN [Concomitant]
     Active Substance: TAMSULOSIN
     Dosage: 0.4 MICROGRAM
     Route: 048
     Dates: start: 20180615

REACTIONS (1)
  - Osteomyelitis [Recovered/Resolved]

NARRATIVE: CASE EVENT DATE: 20220131
